FAERS Safety Report 8438976-8 (Version None)
Quarter: 2012Q2

REPORT INFORMATION
  Report Type: 
  Country: None (occurrence: None)
  Receive Date: 20120607
  Receipt Date: 20120530
  Transmission Date: 20120825
  Serious: Yes (Other)
  Sender: FDA-Public Use
  Company Number: 2012SP029523

PATIENT
  Age: 40 Year
  Sex: Female

DRUGS (4)
  1. DESOGESTREL AND ETHINYL ESTRADIOL [Suspect]
     Indication: CONTRACEPTION
     Dosage: 0.075 MG;QD;PO
     Route: 048
     Dates: end: 20110624
  2. BISOPROLOL FUMARATE [Suspect]
     Indication: HYPERTENSION
     Dosage: 5 MG;QD
     Dates: start: 20090101
  3. CALCIMAGON D3 [Concomitant]
  4. AMLODIPINE [Suspect]
     Indication: HYPERTENSION
     Dosage: 5 MG;QD
     Dates: start: 20090101

REACTIONS (5)
  - PREGNANCY ON ORAL CONTRACEPTIVE [None]
  - MATERNAL EXPOSURE DURING PREGNANCY [None]
  - OLIGOHYDRAMNIOS [None]
  - PROLONGED LABOUR [None]
  - CAESAREAN SECTION [None]
